FAERS Safety Report 10022916 (Version 1)
Quarter: 2014Q1

REPORT INFORMATION
  Report Type: Spontaneous
  Country: US (occurrence: US)
  Receive Date: 20140319
  Receipt Date: 20140319
  Transmission Date: 20141002
  Serious: No
  Sender: FDA-Public Use
  Company Number: US-SANOFI-AVENTIS-2013SA041271

PATIENT
  Sex: Female

DRUGS (1)
  1. NASACORT AQ [Suspect]
     Indication: SINUSITIS
     Dosage: TAKEN FROM- YEAR AGO, DOSE- TWO SPRAY IN EACH NOSTRIL
     Route: 045

REACTIONS (2)
  - Upper-airway cough syndrome [Unknown]
  - Dysphonia [Unknown]
